FAERS Safety Report 15433695 (Version 1)
Quarter: 2018Q3

REPORT INFORMATION
  Report Type: Other
  Country: CA (occurrence: CA)
  Receive Date: 20180927
  Receipt Date: 20180927
  Transmission Date: 20181010
  Serious: Yes (Other)
  Sender: FDA-Public Use
  Company Number: CA-GLENMARK PHARMACEUTICALS-2018GMK037472

PATIENT

DRUGS (3)
  1. SUBOXONE [Suspect]
     Active Substance: BUPRENORPHINE HYDROCHLORIDE\NALOXONE HYDROCHLORIDE
     Dosage: 8 MG, TID
     Route: 060
  2. GABAPENTIN. [Suspect]
     Active Substance: GABAPENTIN
     Indication: PRODUCT USED FOR UNKNOWN INDICATION
     Dosage: 300 MG, QD
     Route: 065
  3. SUBOXONE [Suspect]
     Active Substance: BUPRENORPHINE HYDROCHLORIDE\NALOXONE HYDROCHLORIDE
     Indication: PAIN MANAGEMENT
     Dosage: 6 MG, QD
     Route: 060

REACTIONS (10)
  - Product use issue [Unknown]
  - Drug ineffective for unapproved indication [Unknown]
  - Haemoptysis [Unknown]
  - Anaemia [Unknown]
  - Dizziness [Unknown]
  - Intentional underdose [Unknown]
  - Fall [Unknown]
  - Skull fracture [Unknown]
  - Pain [Unknown]
  - Off label use [Unknown]
